FAERS Safety Report 7577821-X (Version None)
Quarter: 2011Q2

REPORT INFORMATION
  Report Type: 
  Country: None (occurrence: None)
  Receive Date: 20110628
  Receipt Date: 20110616
  Transmission Date: 20111010
  Serious: Yes (Hospitalization)
  Sender: FDA-Public Use
  Company Number: PHHY2011AU53916

PATIENT
  Sex: Female

DRUGS (2)
  1. CLOZAPINE [Suspect]
     Dosage: 425 MG, UNK
  2. CLOZAPINE [Suspect]
     Dosage: 75 MG, UNK
     Dates: start: 19990624

REACTIONS (3)
  - RED CELL DISTRIBUTION WIDTH INCREASED [None]
  - PLATELET COUNT INCREASED [None]
  - HAEMOGLOBIN DECREASED [None]
